FAERS Safety Report 6122196-6 (Version None)
Quarter: 2009Q1

REPORT INFORMATION
  Report Type: 
  Country: None (occurrence: None)
  Receive Date: 20090316
  Receipt Date: 20090316
  Transmission Date: 20090719
  Serious: Yes (Hospitalization, Other)
  Sender: FDA-Public Use
  Company Number: None

PATIENT
  Age: 23 Year
  Sex: Female
  Weight: 74.8435 kg

DRUGS (2)
  1. GEODON [Suspect]
     Indication: BIPOLAR DISORDER
     Dosage: 80 MG TWICE A DAY PO
     Route: 048
     Dates: start: 20081001, end: 20090101
  2. GEODON [Suspect]
     Indication: SCHIZOPHRENIA, PARANOID TYPE
     Dosage: 80 MG TWICE A DAY PO
     Route: 048
     Dates: start: 20081001, end: 20090101

REACTIONS (15)
  - BLINDNESS [None]
  - DIPLOPIA [None]
  - DIZZINESS [None]
  - HEART RATE INCREASED [None]
  - HYPOKINESIA [None]
  - HYPOPHAGIA [None]
  - JOINT STIFFNESS [None]
  - LOSS OF CONSCIOUSNESS [None]
  - MUSCLE SPASMS [None]
  - MUSCULOSKELETAL STIFFNESS [None]
  - NAUSEA [None]
  - SYNCOPE [None]
  - TREMOR [None]
  - VERTIGO [None]
  - VISION BLURRED [None]
